FAERS Safety Report 14792212 (Version 1)
Quarter: 2018Q2

REPORT INFORMATION
  Report Type: Spontaneous
  Country: US (occurrence: US)
  Receive Date: 20180413
  Receipt Date: 20180413
  Transmission Date: 20180711
  Serious: Yes (Other)
  Sender: FDA-Public Use
  Company Number: None

PATIENT
  Age: 72 Year
  Sex: Male
  Weight: 103.5 kg

DRUGS (11)
  1. MULTI-VIT 1 [Concomitant]
  2. METFORMIN [Concomitant]
     Active Substance: METFORMIN HYDROCHLORIDE
  3. ATENOLOL. [Concomitant]
     Active Substance: ATENOLOL
  4. FISH OIL [Concomitant]
     Active Substance: FISH OIL
  5. TAMSULOSIN [Concomitant]
     Active Substance: TAMSULOSIN
  6. LISINOPRIL. [Concomitant]
     Active Substance: LISINOPRIL
  7. FINASTERIDE. [Concomitant]
     Active Substance: FINASTERIDE
  8. FLUOROURACIL 5% CREAM [Suspect]
     Active Substance: FLUOROURACIL
     Indication: PRECANCEROUS SKIN LESION
     Dosage: ?          QUANTITY:1 SMALL DAB;?
     Route: 061
     Dates: start: 20180325, end: 20180408
  9. ATROVASIN [Concomitant]
  10. ASPIRIN. [Concomitant]
     Active Substance: ASPIRIN
  11. TROLAMINE [Suspect]
     Active Substance: TROLAMINE

REACTIONS (1)
  - Haemorrhage [None]

NARRATIVE: CASE EVENT DATE: 20180403
